FAERS Safety Report 4431138-0 (Version None)
Quarter: 2004Q3

REPORT INFORMATION
  Report Type: 
  Country: None (occurrence: None)
  Receive Date: 20040824
  Receipt Date: 20040722
  Transmission Date: 20050211
  Serious: Yes (Hospitalization, Other)
  Sender: FDA-Public Use
  Company Number: PHBS2004BR09721

PATIENT
  Age: 79 Year
  Sex: Male

DRUGS (3)
  1. EXELON [Suspect]
     Indication: DEMENTIA ALZHEIMER'S TYPE
     Dosage: 1.5 MG, BID
     Route: 048
  2. EXELON [Suspect]
     Dosage: 3 MG, Q12H
     Route: 048
  3. VIOXX [Suspect]

REACTIONS (3)
  - CYSTOSTOMY [None]
  - HAEMORRHAGE URINARY TRACT [None]
  - HEPATIC ENCEPHALOPATHY [None]
